FAERS Safety Report 13340677 (Version 1)
Quarter: 2017Q1

REPORT INFORMATION
  Report Type: Spontaneous
  Country: JP (occurrence: JP)
  Receive Date: 20170316
  Receipt Date: 20170316
  Transmission Date: 20170428
  Serious: Yes (Other)
  Sender: FDA-Public Use
  Company Number: JP-ACCORD-049030

PATIENT
  Age: 63 Year
  Sex: Female
  Weight: 51 kg

DRUGS (3)
  1. LEDIPASVIR/SOFOSBUVIR [Suspect]
     Active Substance: LEDIPASVIR\SOFOSBUVIR
     Indication: HEPATITIS C
     Dosage: SOFOSBUVIR (400 MG/DAY) PLUS LEDIPASVIR (90 MG/DAY)
  2. TACROLIMUS. [Suspect]
     Active Substance: TACROLIMUS
     Indication: LIVER TRANSPLANT
     Dosage: THE DOSE OF TACROLIMUS WAS DECREASED TO 4 AND 2 MG/DAY AT 4 AND 8 WEEKS, RESPECTIVELY.
  3. METHYLPREDNISOLONE. [Concomitant]
     Active Substance: METHYLPREDNISOLONE
     Route: 048

REACTIONS (1)
  - Pneumocystis jirovecii pneumonia [Recovered/Resolved]
